FAERS Safety Report 24215155 (Version 2)
Quarter: 2024Q3

REPORT INFORMATION
  Report Type: Report from Study
  Country: FR (occurrence: FR)
  Receive Date: 20240816
  Receipt Date: 20240817
  Transmission Date: 20241017
  Serious: Yes (Disabling, Other)
  Sender: AUROBINDO
  Company Number: FR-GRUNENTHAL-2024-123590

PATIENT
  Age: 33 Year
  Sex: Male

DRUGS (4)
  1. GABAPENTIN [Suspect]
     Active Substance: GABAPENTIN
     Indication: Product used for unknown indication
     Dosage: UNK
     Route: 065
  2. HYDROXYZINE [Suspect]
     Active Substance: HYDROXYZINE HYDROCHLORIDE
     Indication: Product used for unknown indication
     Dosage: UNK
     Route: 065
  3. TRAMADOL [Suspect]
     Active Substance: TRAMADOL\TRAMADOL HYDROCHLORIDE
     Indication: Product used for unknown indication
     Dosage: UNK
     Route: 065
  4. CLONAZEPAM [Suspect]
     Active Substance: CLONAZEPAM
     Indication: Product used for unknown indication
     Dosage: UNK
     Route: 065

REACTIONS (7)
  - Cerebral disorder [Unknown]
  - Seizure [Unknown]
  - Loss of consciousness [Unknown]
  - Hypotension [Unknown]
  - Cardiac arrest [Unknown]
  - Hypoglycaemia [Unknown]
  - Multiple organ dysfunction syndrome [Unknown]
